FAERS Safety Report 14074667 (Version 1)
Quarter: 2017Q4

REPORT INFORMATION
  Report Type: Spontaneous
  Country: US (occurrence: US)
  Receive Date: 20171011
  Receipt Date: 20171011
  Transmission Date: 20180321
  Serious: Yes (Hospitalization)
  Sender: FDA-Public Use
  Company Number: US-MISSION PHARMACAL COMPANY-2029597

PATIENT
  Age: 52 Year
  Sex: Female

DRUGS (2)
  1. VALIUM [Concomitant]
     Active Substance: DIAZEPAM
     Route: 065
  2. THIOLA [Suspect]
     Active Substance: TIOPRONIN
     Indication: CYSTINURIA
     Route: 065
     Dates: start: 20170915, end: 20171006

REACTIONS (1)
  - Vertigo [Unknown]
